FAERS Safety Report 9663783 (Version 1)
Quarter: 2013Q4

REPORT INFORMATION
  Report Type: Spontaneous
  Country: US (occurrence: US)
  Receive Date: 20131101
  Receipt Date: 20131101
  Transmission Date: 20140711
  Serious: No
  Sender: FDA-Public Use
  Company Number: US-BAYER-2013-129931

PATIENT
  Sex: Male

DRUGS (2)
  1. CIPRO [Suspect]
     Indication: POST PROCEDURAL INFECTION
  2. SUTENT [Concomitant]

REACTIONS (1)
  - Drug ineffective [None]
